FAERS Safety Report 10236939 (Version 1)
Quarter: 2014Q2

REPORT INFORMATION
  Report Type: Spontaneous
  Country: US (occurrence: US)
  Receive Date: 20140613
  Receipt Date: 20140613
  Transmission Date: 20141212
  Serious: Yes (Hospitalization, Other)
  Sender: FDA-Public Use
  Company Number: US-AMGEN INC.-USASP2014042541

PATIENT
  Age: 74 Year
  Sex: Female

DRUGS (1)
  1. PROLIA [Suspect]
     Indication: PRODUCT USED FOR UNKNOWN INDICATION
     Route: 065

REACTIONS (14)
  - Fall [Unknown]
  - Hip fracture [Unknown]
  - Atrial fibrillation [Unknown]
  - Dyspnoea [Unknown]
  - Back pain [Unknown]
  - Bedridden [Unknown]
  - Feeling hot [Unknown]
  - Chills [Unknown]
  - Dry skin [Unknown]
  - Renal disorder [Unknown]
  - Vision blurred [Unknown]
  - Weight decreased [Unknown]
  - Pain in extremity [Unknown]
  - Swelling face [Unknown]
